FAERS Safety Report 5273227-7 (Version None)
Quarter: 2007Q1

REPORT INFORMATION
  Report Type: 
  Country: None (occurrence: None)
  Receive Date: 20070322
  Receipt Date: 20070314
  Transmission Date: 20070707
  Serious: Yes (Life-Threatening, Hospitalization)
  Sender: FDA-Public Use
  Company Number: BE-MERCK-0702BEL00008

PATIENT
  Age: 81 Year
  Sex: Female

DRUGS (8)
  1. COZAAR [Suspect]
     Indication: HYPERTENSION
     Route: 048
     Dates: start: 20050324
  2. NEBIVOLOL HYDROCHLORIDE [Concomitant]
     Route: 048
     Dates: start: 20051214, end: 20060713
  3. LERCANIDIPINE HYDROCHLORIDE [Concomitant]
     Route: 048
     Dates: start: 20060126, end: 20060713
  4. OTILONIUM BROMIDE [Concomitant]
     Route: 048
     Dates: start: 20060510
  5. SOTALOL HYDROCHLORIDE [Suspect]
     Route: 048
     Dates: start: 20000403, end: 20060713
  6. PROPAFENONE HYDROCHLORIDE [Suspect]
     Route: 048
     Dates: start: 20000403, end: 20060713
  7. ALENDRONATE SODIUM [Concomitant]
     Indication: OSTEOPOROSIS
     Route: 048
     Dates: start: 20000425
  8. BROMAZEPAM [Concomitant]
     Route: 048
     Dates: start: 20001015, end: 20060713

REACTIONS (2)
  - ATRIAL FIBRILLATION [None]
  - CARDIAC FAILURE CONGESTIVE [None]
